FAERS Safety Report 6807832-0 (Version None)
Quarter: 2010Q2

REPORT INFORMATION
  Report Type: 
  Country: None (occurrence: None)
  Receive Date: 20100629
  Receipt Date: 20090127
  Transmission Date: 20101027
  Serious: No
  Sender: FDA-Public Use
  Company Number: US-PFIZER INC-2009160891

PATIENT
  Sex: Male

DRUGS (3)
  1. VIAGRA [Suspect]
     Dosage: UNK
     Dates: start: 20081130, end: 20081130
  2. THERAFLU [Suspect]
     Indication: NASOPHARYNGITIS
     Dosage: 30 ML, 1X/DAY
     Route: 048
     Dates: start: 20081130, end: 20081130
  3. THERAFLU [Suspect]
     Indication: COUGH

REACTIONS (1)
  - HYPERHIDROSIS [None]
